FAERS Safety Report 8921524 (Version 2)
Quarter: 2013Q1

REPORT INFORMATION
  Report Type: Spontaneous
  Country: PR (occurrence: PR)
  Receive Date: 20121121
  Receipt Date: 20130103
  Transmission Date: 20140127
  Serious: Yes (Other)
  Sender: FDA-Public Use
  Company Number: PR-ABBOTT-12P-131-0984296-00

PATIENT
  Age: 85 None
  Sex: Female
  Weight: 59.02 kg

DRUGS (9)
  1. HUMIRA [Suspect]
     Indication: RHEUMATOID ARTHRITIS
     Route: 058
     Dates: start: 2010, end: 201209
  2. UNKNOWN MEDICATION [Concomitant]
     Indication: RHEUMATOID ARTHRITIS
  3. SYNTHROID [Concomitant]
     Indication: THYROID DISORDER
  4. AVAPRO [Concomitant]
     Indication: HYPERTENSION
     Route: 048
  5. DEXILANT [Concomitant]
     Indication: DYSPEPSIA
     Route: 048
     Dates: start: 2011
  6. AMBIEN [Concomitant]
     Indication: ANXIETY
     Dosage: AT BEDTIME
     Route: 048
     Dates: start: 201211
  7. KLONOPIN [Concomitant]
     Indication: ANXIETY
     Dosage: IN THE MORNING
     Route: 048
     Dates: start: 201211
  8. COLLAGEN RENEW [Concomitant]
     Indication: RHEUMATOID ARTHRITIS
     Route: 048
     Dates: start: 201211
  9. TRAMADOL [Concomitant]
     Indication: RHEUMATOID ARTHRITIS
     Dosage: TWICE A DAY AS NEEDED
     Route: 048
     Dates: start: 2010

REACTIONS (5)
  - Lung neoplasm malignant [Not Recovered/Not Resolved]
  - Chest X-ray abnormal [Not Recovered/Not Resolved]
  - Pain in extremity [Recovered/Resolved]
  - Muscle spasms [Unknown]
  - Anxiety [Not Recovered/Not Resolved]
